FAERS Safety Report 8002622-8 (Version None)
Quarter: 2011Q4

REPORT INFORMATION
  Report Type: 
  Country: None (occurrence: None)
  Receive Date: 20111222
  Receipt Date: 20111214
  Transmission Date: 20120403
  Serious: Yes (Hospitalization)
  Sender: FDA-Public Use
  Company Number: US-VIIV HEALTHCARE LIMITED-B0750453A

PATIENT
  Age: 69 Year
  Sex: Male
  Weight: 110.9 kg

DRUGS (8)
  1. SELZENTRY [Suspect]
     Indication: HIV INFECTION
     Dosage: 600MG PER DAY
     Route: 048
     Dates: start: 20110606
  2. TRUVADA [Suspect]
     Indication: HIV INFECTION
     Dosage: 1TAB PER DAY
     Dates: start: 20110606
  3. METFORMIN HCL [Concomitant]
     Dosage: 500MG PER DAY
  4. ADVAIR DISKUS 100/50 [Concomitant]
     Dosage: 1PUFF TWICE PER DAY
  5. SPIRONOLACTONE [Concomitant]
     Indication: DYSPNOEA
     Dosage: 100MG PER DAY
  6. ASPIRIN [Concomitant]
     Dosage: 81MG PER DAY
  7. LIPITOR [Concomitant]
     Dosage: 20MG PER DAY
  8. COMBIVENT [Concomitant]
     Dosage: 2PUFF FOUR TIMES PER DAY

REACTIONS (1)
  - ATRIAL FIBRILLATION [None]
